FAERS Safety Report 14170678 (Version 3)
Quarter: 2018Q1

REPORT INFORMATION
  Report Type: Spontaneous
  Country: CA (occurrence: CA)
  Receive Date: 20171108
  Receipt Date: 20180330
  Transmission Date: 20180508
  Serious: Yes (Other)
  Sender: FDA-Public Use
  Company Number: CA-GLAXOSMITHKLINE-CA2017GSK061335

PATIENT
  Sex: Male

DRUGS (2)
  1. BENLYSTA [Suspect]
     Active Substance: BELIMUMAB
     Dosage: UNK
  2. BENLYSTA [Suspect]
     Active Substance: BELIMUMAB
     Indication: SYSTEMIC LUPUS ERYTHEMATOSUS
     Dosage: 960 MG, UNK

REACTIONS (7)
  - Dizziness [Unknown]
  - Urinary tract infection [Recovered/Resolved]
  - Lymphadenopathy [Unknown]
  - Adverse event [Unknown]
  - Nephrolithiasis [Not Recovered/Not Resolved]
  - Rash [Unknown]
  - Fatigue [Unknown]
